FAERS Safety Report 4476549-2 (Version None)
Quarter: 2004Q4

REPORT INFORMATION
  Report Type: 
  Country: None (occurrence: None)
  Receive Date: 20041013
  Receipt Date: 20040923
  Transmission Date: 20050328
  Serious: Yes (Hospitalization, Other)
  Sender: FDA-Public Use
  Company Number: USA040258173

PATIENT
  Age: 87 Year
  Sex: Female

DRUGS (8)
  1. FORTEO [Suspect]
     Indication: OSTEOPOROSIS
     Dates: start: 20031004
  2. CALCIUM [Concomitant]
  3. COREG [Concomitant]
  4. ATIVAN [Concomitant]
  5. HYDROCHLOROTHIAZIDE [Concomitant]
  6. NEXIUM [Concomitant]
  7. TYLENOL [Concomitant]
  8. ASPIRIN [Concomitant]

REACTIONS (10)
  - ALOPECIA [None]
  - CONSTIPATION [None]
  - DIFFICULTY IN WALKING [None]
  - FEMORAL HERNIA [None]
  - INJECTION SITE HAEMORRHAGE [None]
  - INJECTION SITE PAIN [None]
  - LOOSE STOOLS [None]
  - PHARMACEUTICAL PRODUCT COMPLAINT [None]
  - SCIATIC NERVE INJURY [None]
  - VIRAL INFECTION [None]
